FAERS Safety Report 4483467-2 (Version None)
Quarter: 2004Q4

REPORT INFORMATION
  Report Type: 
  Country: None (occurrence: None)
  Receive Date: 20041020
  Receipt Date: 20041011
  Transmission Date: 20050328
  Serious: Yes (Hospitalization)
  Sender: FDA-Public Use
  Company Number: STA-AE-04-MTX-477

PATIENT
  Age: 49 Year
  Sex: Female

DRUGS (6)
  1. METHOTREXATE [Suspect]
     Dosage: 17.5 MG 1X PER 1 WK, ORAL
     Route: 048
     Dates: start: 19920101, end: 20040901
  2. ENBREL [Suspect]
     Indication: RHEUMATOID ARTHRITIS
     Dosage: 25 MG 2X PER 1 WK, SC
     Route: 058
     Dates: start: 20021016, end: 20040524
  3. CELEBREX [Concomitant]
  4. ADVAIR (FLUTICASONE PROPIONATE/SALMETEROL XINOFOATE) [Concomitant]
  5. NEXIUM [Concomitant]
  6. ULTRACET [Concomitant]

REACTIONS (6)
  - DEEP VEIN THROMBOSIS [None]
  - LYMPHOMA [None]
  - NEOPLASM OF THYMUS [None]
  - PNEUMOTHORAX [None]
  - POST PROCEDURAL COMPLICATION [None]
  - PULMONARY EMBOLISM [None]
